FAERS Safety Report 8530478-3 (Version None)
Quarter: 2012Q3

REPORT INFORMATION
  Report Type: 
  Country: None (occurrence: None)
  Receive Date: 20120711
  Receipt Date: 20120628
  Transmission Date: 20120928
  Serious: Yes (Other)
  Sender: FDA-Public Use
  Company Number: 2012-344

PATIENT
  Age: 53 Year
  Sex: Female

DRUGS (2)
  1. BACLOFEN [Suspect]
     Dosage: UG, ONCE/HOUR, INTRATHECAL
     Route: 037
  2. PRIALT [Suspect]
     Dosage: UG, ONCE/HOUR, INTRATHECAL
     Route: 037

REACTIONS (1)
  - MUSCLE SPASTICITY [None]
